FAERS Safety Report 15328061 (Version 5)
Quarter: 2019Q2

REPORT INFORMATION
  Report Type: Report from Study
  Country: CA (occurrence: CA)
  Receive Date: 20180828
  Receipt Date: 20190620
  Transmission Date: 20190711
  Serious: Yes (Other)
  Sender: FDA-Public Use
  Company Number: PHHY2018CA071016

PATIENT
  Age: 75 Year
  Sex: Female

DRUGS (1)
  1. SANDOSTATIN LAR DEPOT [Suspect]
     Active Substance: OCTREOTIDE ACETATE
     Indication: CARCINOID TUMOUR
     Dosage: 30 MG, QMO
     Route: 030
     Dates: start: 20180111

REACTIONS (18)
  - Joint injury [Unknown]
  - Lip injury [Not Recovered/Not Resolved]
  - Blood urine [Unknown]
  - Back pain [Unknown]
  - Blood urine [Recovered/Resolved]
  - Dysuria [Recovered/Resolved]
  - Abdominal pain upper [Unknown]
  - Abdominal pain [Recovered/Resolved]
  - Arthralgia [Unknown]
  - Blood pressure systolic increased [Unknown]
  - Fall [Unknown]
  - Epistaxis [Unknown]
  - Fatigue [Unknown]
  - Nausea [Unknown]
  - Tinnitus [Unknown]
  - Taste disorder [Unknown]
  - Lip pain [Not Recovered/Not Resolved]
  - Urinary tract infection [Unknown]

NARRATIVE: CASE EVENT DATE: 20180417
